FAERS Safety Report 23833728 (Version 4)
Quarter: 2025Q3

REPORT INFORMATION
  Report Type: Report from Study
  Country: US (occurrence: US)
  Receive Date: 20240509
  Receipt Date: 20250813
  Transmission Date: 20251020
  Serious: Yes (Hospitalization, Other)
  Sender: ABBVIE
  Company Number: US-ABBVIE-5751707

PATIENT
  Age: 67 Year
  Sex: Male

DRUGS (2)
  1. HUMIRA [Suspect]
     Active Substance: ADALIMUMAB
     Indication: Crohn^s disease
     Route: 058
     Dates: start: 20180203, end: 2024
  2. HUMIRA [Suspect]
     Active Substance: ADALIMUMAB
     Route: 058
     Dates: start: 2017

REACTIONS (8)
  - Nephrolithiasis [Recovered/Resolved with Sequelae]
  - Renal failure [Recovered/Resolved]
  - Gastrointestinal haemorrhage [Unknown]
  - Infection [Unknown]
  - Cardiac disorder [Unknown]
  - Atrial fibrillation [Recovered/Resolved with Sequelae]
  - Skin swelling [Unknown]
  - Ulcer haemorrhage [Recovered/Resolved with Sequelae]

NARRATIVE: CASE EVENT DATE: 20240101
